FAERS Safety Report 9454346 (Version 6)
Quarter: 2014Q3

REPORT INFORMATION
  Report Type: Report from Study
  Country: VE (occurrence: VE)
  Receive Date: 20130812
  Receipt Date: 20140807
  Transmission Date: 20150326
  Serious: Yes (Other)
  Sender: FDA-Public Use
  Company Number: PHHY2013VE085245

PATIENT
  Age: 64 Year
  Sex: Female

DRUGS (8)
  1. EFFEXOR [Concomitant]
     Active Substance: VENLAFAXINE HYDROCHLORIDE
     Indication: DEPRESSION
     Dosage: 75 MG, DAILY
     Route: 048
     Dates: start: 201308
  2. PANTOC [Concomitant]
     Dosage: 40 MG, DAILY
     Route: 048
  3. PRAVASTATIN [Suspect]
     Active Substance: PRAVASTATIN\PRAVASTATIN SODIUM
  4. RIVOTRIL [Concomitant]
     Active Substance: CLONAZEPAM
     Indication: DEPRESSION
  5. TASIGNA [Suspect]
     Active Substance: NILOTINIB
     Indication: CHRONIC MYELOID LEUKAEMIA
     Dosage: 400 MG, DAILY
     Route: 048
     Dates: start: 20130314, end: 20140502
  6. TASIGNA [Suspect]
     Active Substance: NILOTINIB
     Dates: start: 201405, end: 201407
  7. EUCERIN CREME [Concomitant]
  8. RIVOTRIL [Concomitant]
     Active Substance: CLONAZEPAM
     Indication: ANXIETY
     Dosage: 0.5 MG, DAILY

REACTIONS (13)
  - Epistaxis [Unknown]
  - Pruritus [Unknown]
  - Chromaturia [Unknown]
  - Rash [Recovered/Resolved]
  - Alopecia [Recovering/Resolving]
  - Influenza [Recovering/Resolving]
  - Atrial fibrillation [Unknown]
  - Arrhythmia [Unknown]
  - Tachycardia [Recovering/Resolving]
  - Thrombosis [Not Recovered/Not Resolved]
  - Fatigue [Recovering/Resolving]
  - Madarosis [Recovering/Resolving]
  - Hepatic enzyme increased [Unknown]

NARRATIVE: CASE EVENT DATE: 201309
